FAERS Safety Report 21909268 (Version 2)
Quarter: 2023Q1

REPORT INFORMATION
  Report Type: Report from Study
  Country: US (occurrence: US)
  Receive Date: 20230125
  Receipt Date: 20230317
  Transmission Date: 20230417
  Serious: Yes (Other)
  Sender: FDA-Public Use
  Company Number: US-ABBVIE-4235577

PATIENT
  Sex: Female

DRUGS (1)
  1. IMBRUVICA [Suspect]
     Active Substance: IBRUTINIB
     Indication: Chronic lymphocytic leukaemia
     Route: 048
     Dates: start: 201812

REACTIONS (8)
  - Neoplasm [Unknown]
  - Dysphonia [Unknown]
  - Dysphagia [Unknown]
  - Exostosis [Unknown]
  - Contusion [Unknown]
  - Thyroid disorder [Unknown]
  - Nodule [Unknown]
  - Nervous system disorder [Unknown]
